FAERS Safety Report 7943174-8 (Version None)
Quarter: 2011Q4

REPORT INFORMATION
  Report Type: 
  Country: None (occurrence: None)
  Receive Date: 20111128
  Receipt Date: 20111117
  Transmission Date: 20120403
  Serious: Yes (Other)
  Sender: FDA-Public Use
  Company Number: PHHY2009JP39278

PATIENT
  Sex: Male

DRUGS (8)
  1. TASIGNA [Suspect]
     Dosage: 600 MG/DAY
     Route: 048
     Dates: start: 20090625, end: 20090708
  2. TASIGNA [Suspect]
     Indication: CHRONIC MYELOID LEUKAEMIA
     Dosage: 800 MG/DAY
     Route: 048
     Dates: start: 20090521, end: 20090525
  3. IPD [Concomitant]
     Dosage: 200 MG, UNK
     Route: 048
  4. TASIGNA [Suspect]
     Dosage: 200 MG/DAY
     Route: 048
     Dates: start: 20090609, end: 20090617
  5. CLONAZEPAM [Concomitant]
     Dosage: 0.5 MG, UNK
     Dates: start: 20101124
  6. TASIGNA [Suspect]
     Dosage: 400 MG, DAILY
     Route: 048
     Dates: start: 20090618, end: 20090624
  7. TASIGNA [Suspect]
     Dosage: 800 MG, DAILY
     Route: 048
     Dates: start: 20090709
  8. VALPROATE SODIUM [Concomitant]
     Dosage: 800 MG, UNK
     Route: 048

REACTIONS (6)
  - EOSINOPHIL COUNT INCREASED [None]
  - BLOOD BILIRUBIN INCREASED [None]
  - BLOOD BILIRUBIN UNCONJUGATED INCREASED [None]
  - BLOOD GLUCOSE INCREASED [None]
  - RED BLOOD CELL COUNT INCREASED [None]
  - GENERALISED ERYTHEMA [None]
